FAERS Safety Report 8480783-4 (Version None)
Quarter: 2012Q3

REPORT INFORMATION
  Report Type: 
  Country: None (occurrence: None)
  Receive Date: 20120702
  Receipt Date: 20120618
  Transmission Date: 20120928
  Serious: Yes (Death)
  Sender: FDA-Public Use
  Company Number: BR-ACCORD-013829

PATIENT

DRUGS (3)
  1. THIOGUANINE [Suspect]
     Dosage: ON DAYS 1-5.
     Route: 042
  2. MITOXANTRONE [Suspect]
     Dosage: ON DAYS 1-3.
     Route: 042
  3. ETOPOSIDE [Suspect]
     Dosage: ON DAYS 1-5.
     Route: 042

REACTIONS (2)
  - INFECTION [None]
  - OFF LABEL USE [None]
